FAERS Safety Report 5195229-1 (Version None)
Quarter: 2006Q4

REPORT INFORMATION
  Report Type: 
  Country: None (occurrence: None)
  Receive Date: 20061229
  Receipt Date: 20061219
  Transmission Date: 20070319
  Serious: Yes (Hospitalization)
  Sender: FDA-Public Use
  Company Number: FR-MERCK-0612FRA00089

PATIENT
  Age: 17 Year
  Sex: Male
  Weight: 45 kg

DRUGS (9)
  1. CANCIDAS [Suspect]
     Indication: CANDIDIASIS
     Route: 041
  2. CANCIDAS [Suspect]
     Route: 041
  3. TACROLIMUS [Concomitant]
     Indication: LUNG TRANSPLANT
     Route: 048
  4. TACROLIMUS [Concomitant]
     Indication: LIVER TRANSPLANT
     Route: 048
  5. MYCOPHENOLATE MOFETIL [Concomitant]
     Indication: LUNG TRANSPLANT
     Route: 048
  6. MYCOPHENOLATE MOFETIL [Concomitant]
     Indication: LIVER TRANSPLANT
     Route: 048
  7. CORTICOSTEROIDS (UNSPECIFIED) [Concomitant]
     Indication: LUNG TRANSPLANT
     Route: 048
  8. CORTICOSTEROIDS (UNSPECIFIED) [Concomitant]
     Indication: LIVER TRANSPLANT
     Route: 048
  9. ANTIMICROBIAL (UNSPECIFIED) [Concomitant]
     Indication: BLOOD CULTURE POSITIVE
     Route: 065

REACTIONS (1)
  - DRUG INEFFECTIVE [None]
